FAERS Safety Report 5449511-0 (Version None)
Quarter: 2007Q3

REPORT INFORMATION
  Report Type: 
  Country: None (occurrence: None)
  Receive Date: 20070907
  Receipt Date: 20070829
  Transmission Date: 20080115
  Serious: Yes (Other)
  Sender: FDA-Public Use
  Company Number: CHPA2007US09188

PATIENT
  Age: 40 Year
  Sex: Male
  Weight: 79.4 kg

DRUGS (5)
  1. FERROUS SULFATE TAB [Suspect]
     Indication: ANAEMIA
     Dosage: 320 MG, QD, ORAL
     Route: 048
     Dates: start: 20070815
  2. ANTIBIOTICS(NO INGREDIENTS/SUBSTANCES) [Suspect]
     Indication: STAPHYLOCOCCAL INFECTION
  3. OXYCONTIN [Concomitant]
  4. PERCOCET [Concomitant]
  5. AMBIEN [Concomitant]

REACTIONS (8)
  - DRUG HYPERSENSITIVITY [None]
  - DYSPNOEA [None]
  - GAIT DISTURBANCE [None]
  - JOINT SWELLING [None]
  - OEDEMA PERIPHERAL [None]
  - PAIN [None]
  - PRURITUS [None]
  - RASH PAPULAR [None]
